FAERS Safety Report 8062424-3 (Version None)
Quarter: 2012Q1

REPORT INFORMATION
  Report Type: 
  Country: None (occurrence: None)
  Receive Date: 20120123
  Receipt Date: 20120112
  Transmission Date: 20120608
  Serious: Yes (Hospitalization)
  Sender: FDA-Public Use
  Company Number: US-ACTELION-A-US2012-59680

PATIENT

DRUGS (4)
  1. DIGOXIN [Concomitant]
  2. VIAGRA [Concomitant]
  3. AMIODARONE HCL [Concomitant]
  4. TRACLEER [Suspect]
     Indication: PULMONARY ARTERIAL HYPERTENSION
     Dosage: UNK
     Route: 048
     Dates: start: 20110719

REACTIONS (3)
  - HAEMATOCHEZIA [None]
  - HAEMOGLOBIN ABNORMAL [None]
  - GASTROINTESTINAL HAEMORRHAGE [None]
